FAERS Safety Report 10154328 (Version 3)
Quarter: 2014Q2

REPORT INFORMATION
  Report Type: Spontaneous
  Country: US (occurrence: US)
  Receive Date: 20140506
  Receipt Date: 20140604
  Transmission Date: 20141212
  Serious: Yes (Other)
  Sender: FDA-Public Use
  Company Number: US-PFIZER INC-2014121244

PATIENT
  Age: 47 Year
  Sex: Female
  Weight: 44.9 kg

DRUGS (3)
  1. LYRICA [Suspect]
     Indication: MYELITIS TRANSVERSE
     Dosage: 50 MG, UNK
  2. LYRICA [Suspect]
     Dosage: 75 MG, UNK
  3. LYRICA [Suspect]
     Dosage: 225 MG, 3X/DAY

REACTIONS (5)
  - Multiple sclerosis [Unknown]
  - Drug ineffective [Unknown]
  - Neck pain [Unknown]
  - Hypoaesthesia [Unknown]
  - Intentional product misuse [Unknown]
